FAERS Safety Report 8097446-X (Version None)
Quarter: 2012Q1

REPORT INFORMATION
  Report Type: 
  Country: None (occurrence: None)
  Receive Date: 20120128
  Receipt Date: 20110623
  Transmission Date: 20120608
  Serious: No
  Sender: FDA-Public Use
  Company Number: US-ABBOTT-11P-163-0734645-00

PATIENT
  Sex: Female

DRUGS (10)
  1. HUMIRA [Suspect]
     Indication: CROHN'S DISEASE
     Dosage: DAY ONE
     Dates: start: 20110615
  2. LORAZEPAM [Concomitant]
     Indication: ANXIETY
  3. CYMBALTA [Concomitant]
     Indication: ANXIETY
  4. LEVOTHYROXINE SODIUM [Concomitant]
     Indication: THYROID DISORDER
  5. PREMARIN [Concomitant]
     Indication: HORMONE REPLACEMENT THERAPY
  6. ACETAMINOPHEN [Concomitant]
     Indication: HEADACHE
  7. CYMBALTA [Concomitant]
     Indication: ARTHRALGIA
  8. LOMOTIL [Concomitant]
     Indication: DIARRHOEA
     Dosage: 1-8 TIMES DAILY
  9. BISMUTH SUBSALICYLATE [Concomitant]
     Indication: DIARRHOEA
     Dosage: UP TO 9 CAPLETS DAILY
  10. TRAZODONE HCL [Concomitant]
     Indication: INSOMNIA

REACTIONS (2)
  - HEADACHE [None]
  - NECK PAIN [None]
